FAERS Safety Report 4760399-3 (Version None)
Quarter: 2005Q3

REPORT INFORMATION
  Report Type: 
  Country: None (occurrence: None)
  Receive Date: 20050902
  Receipt Date: 20050825
  Transmission Date: 20060218
  Serious: Yes (Hospitalization)
  Sender: FDA-Public Use
  Company Number: US-GLAXOSMITHKLINE-B0392254A

PATIENT
  Age: 56 Year
  Sex: Female

DRUGS (2)
  1. LAMIVUDINE [Suspect]
     Indication: HIV INFECTION
     Route: 065
  2. STAVUDINE [Suspect]
     Indication: HIV INFECTION
     Route: 065

REACTIONS (5)
  - ABDOMINAL PAIN [None]
  - BLOOD LACTIC ACID INCREASED [None]
  - HEPATIC STEATOSIS [None]
  - LACTIC ACIDOSIS [None]
  - VOMITING [None]
